FAERS Safety Report 23085219 (Version 1)
Quarter: 2023Q4

REPORT INFORMATION
  Report Type: Spontaneous
  Country: US (occurrence: None)
  Receive Date: 20231018
  Receipt Date: 20231018
  Transmission Date: 20240110
  Serious: Yes (Hospitalization)
  Sender: FDA-Public Use
  Company Number: None

PATIENT
  Age: 6 Year
  Sex: Male
  Weight: 31.7 kg

DRUGS (26)
  1. RUXOLITINIB [Suspect]
     Active Substance: RUXOLITINIB
     Indication: Haemophagocytic lymphohistiocytosis
     Dosage: FREQUENCY : DAILY;?
     Route: 048
     Dates: start: 20230920
  2. FLUTICASONE [Concomitant]
     Active Substance: FLUTICASONE
  3. POLYETHYLENE GLYCOL [Concomitant]
     Active Substance: POLYETHYLENE GLYCOL
  4. ONDANSETRON [Concomitant]
     Active Substance: ONDANSETRON
  5. AMOXICILLIN\CLAVULANIC ACID [Concomitant]
     Active Substance: AMOXICILLIN\CLAVULANIC ACID
  6. GABAPENTIN [Concomitant]
     Active Substance: GABAPENTIN
  7. MELATONIN [Concomitant]
     Active Substance: MELATONIN
  8. LATANOPROST [Concomitant]
     Active Substance: LATANOPROST
  9. DORZOLAMIDE\TIMOLOL [Concomitant]
     Active Substance: DORZOLAMIDE\TIMOLOL
  10. OFLOXACIN [Concomitant]
     Active Substance: OFLOXACIN
  11. LIDOCAINE [Concomitant]
     Active Substance: LIDOCAINE
  12. POTASSIUM CHLORIDE [Concomitant]
     Active Substance: POTASSIUM CHLORIDE
  13. SENNOSIDES [Concomitant]
     Active Substance: SENNOSIDES
  14. DIPHENHYDRAMINE [Concomitant]
     Active Substance: DIPHENHYDRAMINE
  15. ACETAMINOPHEN [Concomitant]
     Active Substance: ACETAMINOPHEN
  16. MICAFUNGIN [Suspect]
     Active Substance: MICAFUNGIN SODIUM
  17. PANTOPRAZOLE [Concomitant]
     Active Substance: PANTOPRAZOLE
  18. LEVOFLOXACIN [Concomitant]
     Active Substance: LEVOFLOXACIN
  19. BACITRACIN ZINC [Concomitant]
     Active Substance: BACITRACIN ZINC
  20. Sulfamethozale Trimethoprim [Concomitant]
  21. FUROSEMIDE [Concomitant]
     Active Substance: FUROSEMIDE
  22. CHLOROTHIAZIDE [Concomitant]
     Active Substance: CHLOROTHIAZIDE
  23. CEFEPIME [Concomitant]
     Active Substance: CEFEPIME HYDROCHLORIDE
  24. VANCOMYCIN [Concomitant]
     Active Substance: VANCOMYCIN
  25. NYSTATIN [Concomitant]
     Active Substance: NYSTATIN
  26. DEXAMETHASONE [Concomitant]
     Active Substance: DEXAMETHASONE

REACTIONS (6)
  - Candida infection [None]
  - Sinusitis bacterial [None]
  - Generalised oedema [None]
  - Abdominal distension [None]
  - Pyrexia [None]
  - Oxygen saturation decreased [None]

NARRATIVE: CASE EVENT DATE: 20230929
